FAERS Safety Report 10955864 (Version 1)
Quarter: 2015Q1

REPORT INFORMATION
  Report Type: Spontaneous
  Country: FR (occurrence: FR)
  Receive Date: 20150326
  Receipt Date: 20150326
  Transmission Date: 20150721
  Serious: Yes (Other)
  Sender: FDA-Public Use
  Company Number: FR-MYLANLABS-2015M1009546

PATIENT

DRUGS (2)
  1. PENTOXIFYLLINE. [Suspect]
     Active Substance: PENTOXIFYLLINE
     Route: 065
  2. IOBITRIDOL [Suspect]
     Active Substance: IOBITRIDOL
     Route: 065

REACTIONS (1)
  - Acute generalised exanthematous pustulosis [Unknown]
